FAERS Safety Report 5008555-3 (Version None)
Quarter: 2006Q2

REPORT INFORMATION
  Report Type: 
  Country: None (occurrence: None)
  Receive Date: 20060523
  Receipt Date: 20060509
  Transmission Date: 20061013
  Serious: Yes (Hospitalization)
  Sender: FDA-Public Use
  Company Number: FR-MERCK-0605FRA00048

PATIENT
  Age: 5 Month
  Sex: Male
  Weight: 2 kg

DRUGS (5)
  1. PRIMAXIN [Suspect]
     Indication: SALMONELLOSIS
     Route: 042
     Dates: start: 20010529, end: 20010607
  2. PRIMAXIN [Suspect]
     Route: 042
     Dates: start: 20010609, end: 20010617
  3. CEFOTAXIME SODIUM [Concomitant]
     Indication: SALMONELLOSIS
     Route: 042
     Dates: start: 20010513, end: 20010528
  4. NETILMICIN SULFATE [Concomitant]
     Indication: SALMONELLOSIS
     Route: 042
     Dates: start: 20010513, end: 20010528
  5. AMIKACIN [Suspect]
     Indication: SALMONELLOSIS
     Route: 042
     Dates: start: 20010529, end: 20010603

REACTIONS (2)
  - DRUG INEFFECTIVE [None]
  - SALMONELLOSIS [None]
